FAERS Safety Report 7794635-6 (Version None)
Quarter: 2011Q4

REPORT INFORMATION
  Report Type: 
  Country: None (occurrence: None)
  Receive Date: 20111004
  Receipt Date: 20110927
  Transmission Date: 20120403
  Serious: Yes (Other)
  Sender: FDA-Public Use
  Company Number: US-BAYER-2011-092220

PATIENT
  Age: 58 Year
  Sex: Female

DRUGS (7)
  1. AVELOX [Suspect]
     Indication: UNEVALUABLE EVENT
     Dosage: UNK
     Dates: start: 20110301
  2. VYTORIN [Concomitant]
  3. INDERAL [Concomitant]
  4. SYNTHROID [Concomitant]
  5. PRILOSEC [Concomitant]
  6. XANAX [Concomitant]
  7. WELLBUTRIN [Concomitant]

REACTIONS (2)
  - BURNING SENSATION [None]
  - ADVERSE EVENT [None]
